FAERS Safety Report 22088426 (Version 2)
Quarter: 2023Q1

REPORT INFORMATION
  Report Type: Other
  Country: US (occurrence: None)
  Receive Date: 20230313
  Receipt Date: 20230315
  Transmission Date: 20230418
  Serious: Yes (Hospitalization, Other)
  Sender: FDA-Public Use
  Company Number: US-ROCHE-3305510

PATIENT
  Sex: Female

DRUGS (6)
  1. XOLAIR [Suspect]
     Active Substance: OMALIZUMAB
     Indication: Chronic spontaneous urticaria
     Route: 058
     Dates: start: 20230301
  2. XOLAIR [Suspect]
     Active Substance: OMALIZUMAB
     Indication: Chronic sinusitis
  3. ZYRTEC [Concomitant]
     Active Substance: CETIRIZINE HYDROCHLORIDE
  4. PEPCID [Concomitant]
     Active Substance: FAMOTIDINE
  5. FLONASE [Concomitant]
     Active Substance: FLUTICASONE PROPIONATE
  6. LIALDA [Concomitant]
     Active Substance: MESALAMINE

REACTIONS (20)
  - Ulcer [Unknown]
  - Angioedema [Unknown]
  - Meningitis viral [Unknown]
  - Sinusitis [Unknown]
  - Anaphylactic reaction [Unknown]
  - Hepatitis [Unknown]
  - Colitis [Unknown]
  - Urticaria [Unknown]
  - Influenza [Unknown]
  - Swelling [Unknown]
  - Nasal congestion [Unknown]
  - Dyspnoea [Unknown]
  - Increased upper airway secretion [Unknown]
  - Insomnia [Unknown]
  - Illness [Unknown]
  - Sleep apnoea syndrome [Unknown]
  - Chronic sinusitis [Unknown]
  - Hypertrophy [Unknown]
  - Vasculitis [Unknown]
  - Hiatus hernia [Unknown]
